FAERS Safety Report 9501540 (Version 3)
Quarter: 2013Q4

REPORT INFORMATION
  Report Type: Spontaneous
  Country: US (occurrence: None)
  Receive Date: 20130107
  Receipt Date: 20131226
  Transmission Date: 20140711
  Serious: Yes (Other)
  Sender: FDA-Public Use
  Company Number: PHEH2012US021312

PATIENT
  Age: 43 Year
  Sex: Female
  Weight: 77.1 kg

DRUGS (5)
  1. GILENYA [Suspect]
     Indication: MULTIPLE SCLEROSIS
     Route: 048
     Dates: start: 20120713
  2. OMEPRAZOLE (OMEPRAZOLE) [Concomitant]
  3. FLUTICASONE (FLUTICASONE) SPRAY [Concomitant]
  4. LAMICTAL (LAMOTRIGINE) [Concomitant]
  5. SEROQUEL (QUETIAPINE FUMARATE) [Concomitant]

REACTIONS (2)
  - Depressed mood [None]
  - Decreased interest [None]
